FAERS Safety Report 23579360 (Version 1)
Quarter: 2024Q1

REPORT INFORMATION
  Report Type: Spontaneous
  Country: US (occurrence: US)
  Receive Date: 20240229
  Receipt Date: 20240229
  Transmission Date: 20240410
  Serious: Yes (Other)
  Sender: FDA-Public Use
  Company Number: US-Accord-409549

PATIENT
  Age: 50 Year
  Sex: Female

DRUGS (4)
  1. TEMSIROLIMUS [Suspect]
     Active Substance: TEMSIROLIMUS
     Indication: Poorly differentiated thyroid carcinoma
     Dosage: REDUCED TO 15 MG
  2. IPILIMUMAB [Concomitant]
     Active Substance: IPILIMUMAB
     Indication: Poorly differentiated thyroid carcinoma
     Dosage: EVERY SIX WEEKS
  3. NIVOLUMAB [Concomitant]
     Active Substance: NIVOLUMAB
     Indication: Poorly differentiated thyroid carcinoma
     Dosage: EVERY TWO WEEKS
  4. LEVOTHYROXINE SODIUM [Concomitant]
     Active Substance: LEVOTHYROXINE SODIUM

REACTIONS (4)
  - Pancytopenia [Recovered/Resolved]
  - Joint swelling [Unknown]
  - Acne [Unknown]
  - Off label use [Unknown]
